FAERS Safety Report 21644036 (Version 2)
Quarter: 2022Q4

REPORT INFORMATION
  Report Type: Spontaneous
  Country: HN (occurrence: HN)
  Receive Date: 20221125
  Receipt Date: 20221208
  Transmission Date: 20230113
  Serious: No
  Sender: FDA-Public Use
  Company Number: HN-SA-SAC20221123000765

PATIENT
  Age: 80 Year
  Sex: Male

DRUGS (1)
  1. INSULIN GLARGINE [Suspect]
     Active Substance: INSULIN GLARGINE
     Indication: Type 2 diabetes mellitus
     Dosage: 20 IU, QD
     Route: 030
     Dates: start: 202205

REACTIONS (5)
  - Gait inability [Not Recovered/Not Resolved]
  - Ulcer [Unknown]
  - Depression [Unknown]
  - Arthropathy [Unknown]
  - Intentional product misuse [Unknown]

NARRATIVE: CASE EVENT DATE: 20220501
